FAERS Safety Report 7803917-0 (Version None)
Quarter: 2011Q4

REPORT INFORMATION
  Report Type: 
  Country: None (occurrence: None)
  Receive Date: 20111010
  Receipt Date: 20111004
  Transmission Date: 20120403
  Serious: Yes (Other)
  Sender: FDA-Public Use
  Company Number: US-PFIZER INC-2011231815

PATIENT
  Sex: Male
  Weight: 86 kg

DRUGS (4)
  1. HYZAAR [Concomitant]
     Indication: HYPERTENSION
     Dosage: UNK
  2. VIAGRA [Suspect]
     Dosage: UNK
     Dates: start: 20110101
  3. VIAGRA [Suspect]
     Indication: ERECTILE DYSFUNCTION
     Dosage: 100 MG, AS NEEDED
     Route: 048
     Dates: start: 20110916
  4. METFORMIN HCL [Suspect]
     Dosage: UNK
     Dates: start: 20110101, end: 20110101

REACTIONS (2)
  - GLOMERULAR FILTRATION RATE DECREASED [None]
  - RENAL IMPAIRMENT [None]
